FAERS Safety Report 13820383 (Version 1)
Quarter: 2017Q3

REPORT INFORMATION
  Report Type: Spontaneous
  Country: GB (occurrence: GB)
  Receive Date: 20170801
  Receipt Date: 20170801
  Transmission Date: 20171127
  Serious: Yes (Disabling, Other)
  Sender: FDA-Public Use
  Company Number: GB-MYLANLABS-2017M1045097

PATIENT

DRUGS (7)
  1. FUROSEMIDE. [Concomitant]
     Active Substance: FUROSEMIDE
  2. SPIROLACTON [Concomitant]
  3. BISOPROLOL [Suspect]
     Active Substance: BISOPROLOL
     Indication: CARDIAC DISORDER
     Dosage: 1.25 MG IN THE MORNING, 2.5 MG IN THE AFTERNOON
     Route: 048
     Dates: start: 20160707, end: 20170709
  4. DIGOXIN. [Concomitant]
     Active Substance: DIGOXIN
  5. APIXABAN [Concomitant]
     Active Substance: APIXABAN
  6. VALSARTAN. [Concomitant]
     Active Substance: VALSARTAN
  7. ATORVASTATIN [Concomitant]
     Active Substance: ATORVASTATIN

REACTIONS (8)
  - Atrial fibrillation [Unknown]
  - Nausea [Recovering/Resolving]
  - Presyncope [Recovering/Resolving]
  - Dizziness [Recovering/Resolving]
  - Dyspnoea [Unknown]
  - Asthenia [Recovering/Resolving]
  - Diarrhoea [Recovered/Resolved]
  - Decreased appetite [Recovering/Resolving]

NARRATIVE: CASE EVENT DATE: 201704
